FAERS Safety Report 6583111-4 (Version None)
Quarter: 2010Q1

REPORT INFORMATION
  Report Type: 
  Country: None (occurrence: None)
  Receive Date: 20100216
  Receipt Date: 20100127
  Transmission Date: 20100710
  Serious: Yes (Other)
  Sender: FDA-Public Use
  Company Number: MT-MERCK-1002USA01953

PATIENT
  Age: 73 Year
  Sex: Female

DRUGS (1)
  1. ZOCOR [Suspect]
     Route: 048
     Dates: end: 20091201

REACTIONS (3)
  - MUSCLE RUPTURE [None]
  - PAIN [None]
  - RHABDOMYOLYSIS [None]
